FAERS Safety Report 11457631 (Version 2)
Quarter: 2015Q3

REPORT INFORMATION
  Report Type: Spontaneous
  Country: FI (occurrence: FI)
  Receive Date: 20150904
  Receipt Date: 20150910
  Transmission Date: 20151125
  Serious: Yes (Other)
  Sender: FDA-Public Use
  Company Number: FI-ROCHE-1629992

PATIENT
  Age: 79 Year
  Sex: Female

DRUGS (27)
  1. XELODA [Concomitant]
     Active Substance: CAPECITABINE
     Indication: COLORECTAL CANCER
     Route: 065
     Dates: start: 20120713, end: 20121212
  2. NORVASC [Concomitant]
     Active Substance: AMLODIPINE BESYLATE
     Route: 065
  3. GRANISETRON STADA [Concomitant]
     Route: 048
  4. EMGESAN [Concomitant]
     Route: 065
  5. ANTREX [Concomitant]
     Route: 065
     Dates: start: 20150305, end: 20150708
  6. PREDNISOLON [Concomitant]
     Active Substance: PREDNISOLONE
     Dosage: 2 TABLETS ONCE A DAY
     Route: 048
  7. IRINOTECAN [Concomitant]
     Active Substance: IRINOTECAN
     Route: 065
     Dates: start: 20150305, end: 20150708
  8. FLUOROURACIL. [Concomitant]
     Active Substance: FLUOROURACIL
     Indication: COLORECTAL CANCER
     Route: 065
     Dates: start: 20130906, end: 20140429
  9. FURESIS [Concomitant]
     Active Substance: FUROSEMIDE
     Route: 065
  10. INNOHEP [Concomitant]
     Active Substance: TINZAPARIN SODIUM
     Route: 065
  11. IMOCUR (FINLAND) [Concomitant]
     Dosage: 1-2 TABLET 1-3 TIMES A DAY
     Route: 048
  12. SOMAC [Concomitant]
     Active Substance: PANTOPRAZOLE SODIUM
     Route: 065
  13. AVASTIN [Suspect]
     Active Substance: BEVACIZUMAB
     Indication: COLORECTAL CANCER
     Route: 042
     Dates: start: 20130906, end: 20140429
  14. THYROXIN [Concomitant]
     Active Substance: LEVOTHYROXINE
     Route: 065
  15. PRIMPERAN [Concomitant]
     Active Substance: METOCLOPRAMIDE HYDROCHLORIDE
     Dosage: 1 TABLET 2-3 TIMES A DAY
     Route: 065
  16. AVASTIN [Suspect]
     Active Substance: BEVACIZUMAB
     Route: 042
     Dates: start: 20140806, end: 20150212
  17. XELODA [Concomitant]
     Active Substance: CAPECITABINE
     Route: 065
     Dates: start: 20140806, end: 20150212
  18. IRINOTECAN [Concomitant]
     Active Substance: IRINOTECAN
     Indication: COLORECTAL CANCER
     Route: 065
     Dates: start: 20130906, end: 20140429
  19. JANUVIA [Concomitant]
     Active Substance: SITAGLIPTIN PHOSPHATE
     Route: 065
  20. KALEORID [Concomitant]
     Active Substance: POTASSIUM CHLORIDE
     Route: 065
  21. NEULASTA [Concomitant]
     Active Substance: PEGFILGRASTIM
     Route: 065
  22. FLUOROURACIL. [Concomitant]
     Active Substance: FLUOROURACIL
     Route: 065
     Dates: start: 20150305, end: 20150708
  23. ANTREX [Concomitant]
     Indication: COLORECTAL CANCER
     Route: 065
     Dates: start: 20130906, end: 20140429
  24. PROTAPHANE [Concomitant]
     Active Substance: INSULIN HUMAN
     Route: 065
  25. PARA-TABS [Concomitant]
     Active Substance: ACETAMINOPHEN
     Dosage: 1 TABLET 1-3 TIMES A DAY
     Route: 048
  26. ADURSAL [Concomitant]
     Route: 048
  27. NOVORAPID [Concomitant]
     Active Substance: INSULIN ASPART
     Route: 065

REACTIONS (3)
  - Fatigue [Unknown]
  - Encephalopathy [Not Recovered/Not Resolved]
  - Decreased appetite [Unknown]

NARRATIVE: CASE EVENT DATE: 201404
